FAERS Safety Report 4973340-5 (Version None)
Quarter: 2006Q2

REPORT INFORMATION
  Report Type: 
  Country: None (occurrence: None)
  Receive Date: 20060414
  Receipt Date: 20051205
  Transmission Date: 20061013
  Serious: Yes (Hospitalization, Disabling)
  Sender: FDA-Public Use
  Company Number: US-MERCK-0512USA00699

PATIENT
  Age: 51 Year
  Sex: Female
  Weight: 95 kg

DRUGS (7)
  1. FLOVENT [Concomitant]
     Route: 065
  2. ALBUTEROL [Concomitant]
     Route: 065
  3. CLARITIN [Concomitant]
     Route: 048
  4. VIOXX [Suspect]
     Indication: OSTEOARTHRITIS
     Route: 048
     Dates: start: 20010905, end: 20020131
  5. TYLENOL (CAPLET) [Concomitant]
     Route: 065
  6. CARDURA [Concomitant]
     Route: 048
  7. HYDRODIURIL [Concomitant]
     Route: 048

REACTIONS (5)
  - CEREBRAL ARTERY OCCLUSION [None]
  - CEREBROVASCULAR ACCIDENT [None]
  - HYPERTONIC BLADDER [None]
  - ISCHAEMIA [None]
  - TENDONITIS [None]
